FAERS Safety Report 15665093 (Version 1)
Quarter: 2018Q4

REPORT INFORMATION
  Report Type: Spontaneous
  Country: US (occurrence: US)
  Receive Date: 20181128
  Receipt Date: 20181128
  Transmission Date: 20190205
  Serious: Yes (Hospitalization, Other)
  Sender: FDA-Public Use
  Company Number: US-SA-2018SA145573

PATIENT
  Age: 25 Year
  Sex: Female
  Weight: 38.55 kg

DRUGS (23)
  1. VICKS NYQUIL [Concomitant]
     Active Substance: ACETAMINOPHEN\DEXTROMETHORPHAN HYDROBROMIDE\DOXYLAMINE SUCCINATE
     Dosage: 2 DF, PRN
     Route: 048
     Dates: start: 20170227
  2. ALDURAZYME [Suspect]
     Active Substance: LARONIDASE
     Indication: MUCOPOLYSACCHARIDOSIS
     Dosage: 23.2 MG, QW
     Route: 041
     Dates: start: 20050407
  3. SODIUM CHLORIDE. [Concomitant]
     Active Substance: SODIUM CHLORIDE
     Dosage: 0.9 UNK
     Route: 042
     Dates: start: 20171218
  4. BACITRACIN. [Concomitant]
     Active Substance: BACITRACIN
     Dosage: 500 U, BID
     Route: 061
     Dates: start: 20170120
  5. XARELTO [Concomitant]
     Active Substance: RIVAROXABAN
     Dosage: 1 DF, QD
     Route: 048
     Dates: start: 20161004
  6. QVAR [Concomitant]
     Active Substance: BECLOMETHASONE DIPROPIONATE
     Dosage: 2 DF, BID
     Route: 055
     Dates: start: 20120306
  7. VESICARE [Concomitant]
     Active Substance: SOLIFENACIN SUCCINATE
     Dosage: 1 DF, QD
     Route: 048
     Dates: start: 20140206
  8. ALBUTEROL [SALBUTAMOL SULFATE] [Concomitant]
     Dosage: 2 DF, PRN
     Route: 055
     Dates: start: 20070326
  9. OXYGEN. [Concomitant]
     Active Substance: OXYGEN
     Dosage: 2 L
     Route: 045
     Dates: start: 20170302
  10. NORMAL SALINE [Concomitant]
     Active Substance: SODIUM CHLORIDE
     Dosage: 0.9 %
     Route: 042
     Dates: start: 20050408
  11. LMX [LIDOCAINE] [Concomitant]
     Indication: PREMEDICATION
     Dosage: 4 %
     Route: 061
     Dates: start: 20050408
  12. ENALAPRIL [Concomitant]
     Active Substance: ENALAPRIL
     Dosage: 3.75 MG, QD
     Route: 048
     Dates: start: 20160510
  13. IBUPROFEN. [Concomitant]
     Active Substance: IBUPROFEN
     Dosage: 15 ML, PRN
     Route: 048
     Dates: start: 20170601
  14. SYSTANE (HYPROMELLOSE 2910 (4000 MPA.S)) [Concomitant]
     Active Substance: HYPROMELLOSE 2910 (4000 MPA.S)
     Dosage: 1 DROP, TID
     Route: 047
  15. PREDNISOLONE. [Concomitant]
     Active Substance: PREDNISOLONE
     Dosage: 1 DROP, QD
     Route: 047
     Dates: start: 20140206
  16. EPINEPHRINE. [Concomitant]
     Active Substance: EPINEPHRINE
     Indication: ANAPHYLACTIC REACTION
     Dosage: 0.3 MG, PRN
     Route: 030
     Dates: start: 20171218
  17. FERROUS SULFATE. [Concomitant]
     Active Substance: FERROUS SULFATE
     Dosage: 325 MG, QD
     Route: 048
     Dates: start: 20180223
  18. DELSYM [Concomitant]
     Active Substance: DEXTROMETHORPHAN
     Dosage: 1 DF, PRN
     Route: 048
     Dates: start: 20170601
  19. DIPHENDRYL [Concomitant]
     Dosage: 1 DF, PRN
     Dates: start: 20170227
  20. HEPARIN [Concomitant]
     Active Substance: HEPARIN SODIUM
     Dosage: UNK
     Route: 042
  21. ACETAMINOPHEN. [Concomitant]
     Active Substance: ACETAMINOPHEN
     Indication: PREMEDICATION
     Dosage: 2 DF, PRN
     Route: 048
     Dates: start: 20070326
  22. DIPHENHYDRAMINE. [Concomitant]
     Active Substance: DIPHENHYDRAMINE
     Indication: ANAPHYLACTIC REACTION
     Dosage: 1 DF, PRN
     Route: 048
     Dates: start: 20170227
  23. SINGULAIR [Concomitant]
     Active Substance: MONTELUKAST SODIUM
     Dosage: 2 DF, QD
     Route: 048
     Dates: start: 20120827

REACTIONS (3)
  - Pneumonia [Unknown]
  - Tracheostomy [Unknown]
  - Blood pressure abnormal [Unknown]

NARRATIVE: CASE EVENT DATE: 20180509
